FAERS Safety Report 10162420 (Version 1)
Quarter: 2014Q2

REPORT INFORMATION
  Report Type: Spontaneous
  Country: US (occurrence: US)
  Receive Date: 20140509
  Receipt Date: 20140509
  Transmission Date: 20141212
  Serious: No
  Sender: FDA-Public Use
  Company Number: US-GLAXOSMITHKLINE-B0146723A

PATIENT
  Age: 31 Year
  Sex: Female
  Weight: 42.75 kg

DRUGS (1)
  1. MUPIROCIN [Suspect]
     Indication: WOUND
     Route: 061
     Dates: start: 19900220, end: 19900220

REACTIONS (1)
  - Anaphylactoid reaction [Recovered/Resolved]
